FAERS Safety Report 9932539 (Version 1)
Quarter: 2014Q1

REPORT INFORMATION
  Report Type: Spontaneous
  Country: US (occurrence: US)
  Receive Date: 20140228
  Receipt Date: 20140228
  Transmission Date: 20141002
  Serious: No
  Sender: FDA-Public Use
  Company Number: US-GLAXOSMITHKLINE-A1020068A

PATIENT
  Age: 43 Year
  Sex: Female
  Weight: 77.3 kg

DRUGS (24)
  1. LAMICTAL [Suspect]
     Indication: AGORAPHOBIA
     Route: 065
  2. PAXIL [Suspect]
     Indication: AGORAPHOBIA
     Route: 065
  3. WELLBUTRIN [Suspect]
     Indication: AGORAPHOBIA
     Route: 065
  4. PRISTIQ [Concomitant]
     Indication: AGORAPHOBIA
     Dosage: 50MG TWICE PER DAY
     Route: 048
  5. SEROQUEL XR [Concomitant]
  6. XANAX [Concomitant]
  7. ADDERALL [Concomitant]
  8. ZOLOFT [Concomitant]
     Indication: AGORAPHOBIA
     Route: 065
  9. PROZAC [Concomitant]
     Indication: AGORAPHOBIA
     Route: 065
  10. VALIUM [Concomitant]
     Indication: AGORAPHOBIA
     Route: 065
  11. KLONOPIN [Concomitant]
     Indication: AGORAPHOBIA
     Route: 065
  12. TOPAMAX [Concomitant]
     Indication: AGORAPHOBIA
     Route: 065
  13. ABILIFY [Concomitant]
     Indication: AGORAPHOBIA
     Dosage: 10MG PER DAY
  14. LEXAPRO [Concomitant]
     Indication: AGORAPHOBIA
     Route: 065
  15. CELEXA [Concomitant]
     Indication: AGORAPHOBIA
     Route: 065
  16. CYMBALTA [Concomitant]
     Indication: AGORAPHOBIA
     Route: 065
  17. ANAFRANIL [Concomitant]
     Indication: AGORAPHOBIA
     Route: 065
  18. TEGRETOL [Concomitant]
     Indication: AGORAPHOBIA
     Route: 065
  19. LUVOX [Concomitant]
     Indication: AGORAPHOBIA
     Route: 065
  20. SEROQUEL [Concomitant]
     Indication: AGORAPHOBIA
     Route: 065
  21. DEPAKOTE [Concomitant]
     Indication: AGORAPHOBIA
     Route: 065
  22. UNSPECIFIED MEDICATIONS [Concomitant]
     Indication: AGORAPHOBIA
     Route: 065
  23. IMIPRAMINE [Concomitant]
  24. LITHIUM [Concomitant]
     Indication: AGORAPHOBIA
     Dosage: 300MG THREE TIMES PER DAY
     Route: 065

REACTIONS (1)
  - Drug ineffective [Unknown]
